FAERS Safety Report 5254475-9 (Version None)
Quarter: 2007Q1

REPORT INFORMATION
  Report Type: 
  Country: None (occurrence: None)
  Receive Date: 20070302
  Receipt Date: 20070220
  Transmission Date: 20070707
  Serious: Yes (Hospitalization)
  Sender: FDA-Public Use
  Company Number: CA-PFIZER INC-2006134324

PATIENT
  Sex: Male

DRUGS (13)
  1. SU-011,248 [Suspect]
     Indication: RENAL CELL CARCINOMA STAGE UNSPECIFIED
     Route: 048
  2. DEXAMETHASONE [Concomitant]
     Route: 048
  3. FLORINEF [Concomitant]
     Route: 048
  4. METFORMIN HCL [Concomitant]
     Route: 048
  5. AVANDIA [Concomitant]
     Route: 048
  6. ZOLOFT [Concomitant]
     Route: 048
  7. DILAUDID [Concomitant]
     Route: 048
  8. DURAGESIC [Concomitant]
     Route: 061
  9. SEROQUEL [Concomitant]
     Route: 048
  10. AMITRIPTYLINE HCL [Concomitant]
     Route: 048
  11. VITAMINS [Concomitant]
     Route: 048
  12. PREDNISOLONE [Concomitant]
     Route: 061
  13. COSOPT [Concomitant]
     Route: 061

REACTIONS (7)
  - BACTERAEMIA [None]
  - CONFUSIONAL STATE [None]
  - DEHYDRATION [None]
  - DYSPNOEA [None]
  - HAEMOPTYSIS [None]
  - HALLUCINATION [None]
  - PNEUMONIA [None]
